FAERS Safety Report 4791669-0 (Version None)
Quarter: 2005Q4

REPORT INFORMATION
  Report Type: 
  Country: None (occurrence: None)
  Receive Date: 20051007
  Receipt Date: 20050929
  Transmission Date: 20060501
  Serious: Yes (Death)
  Sender: FDA-Public Use
  Company Number: US-KINGPHARMUSA00001-K200501287

PATIENT
  Age: 25 Year

DRUGS (4)
  1. TUSSIGON TABLETS [Suspect]
     Route: 048
  2. CARISOPRODOL [Suspect]
     Route: 048
  3. MEPROBAMATE [Suspect]
     Route: 048
  4. DIAZEPAM [Suspect]
     Route: 048

REACTIONS (4)
  - CARDIO-RESPIRATORY ARREST [None]
  - COMPLETED SUICIDE [None]
  - DRUG LEVEL INCREASED [None]
  - OVERDOSE [None]
